FAERS Safety Report 14660377 (Version 1)
Quarter: 2018Q1

REPORT INFORMATION
  Report Type: Spontaneous
  Country: US (occurrence: US)
  Receive Date: 20180317
  Receipt Date: 20180317
  Transmission Date: 20180509
  Serious: Yes (Other)
  Sender: FDA-Public Use
  Company Number: None

PATIENT
  Age: 37 Year
  Sex: Female
  Weight: 100.8 kg

DRUGS (1)
  1. RHOGAM [Suspect]
     Active Substance: HUMAN RHO(D) IMMUNE GLOBULIN
     Indication: RHESUS ANTIGEN NEGATIVE
     Route: 058
     Dates: start: 20180313

REACTIONS (4)
  - Influenza [None]
  - Discoloured vomit [None]
  - Foetal hypokinesia [None]
  - Somnolence [None]

NARRATIVE: CASE EVENT DATE: 20180313
